FAERS Safety Report 11746439 (Version 1)
Quarter: 2015Q4

REPORT INFORMATION
  Report Type: Spontaneous
  Country: US (occurrence: None)
  Receive Date: 20151116
  Receipt Date: 20151116
  Transmission Date: 20160304
  Serious: Yes (Disabling, Other)
  Sender: FDA-Public Use
  Company Number: None

PATIENT
  Age: 54 Year
  Sex: Female
  Weight: 88.45 kg

DRUGS (7)
  1. SYNTHROID [Concomitant]
     Active Substance: LEVOTHYROXINE SODIUM
  2. LOW DOSE NALTREXONE [Concomitant]
     Active Substance: NALTREXONE
  3. DULOXETINE HCL DELAYED RELEASE 30 MG BRECKENRIDGE PHARMACEUTICALS [Suspect]
     Active Substance: DULOXETINE HYDROCHLORIDE
     Indication: DEPRESSION
     Route: 048
     Dates: start: 20151104, end: 20151106
  4. D3 [Concomitant]
     Active Substance: 25-HYDROXYCHOLECALCIFEROL, 5-TRANS-
  5. CYTOMEL [Concomitant]
     Active Substance: LIOTHYRONINE SODIUM
  6. GUAIFINESIN [Concomitant]
  7. DULOXETINE HCL DELAYED RELEASE 30 MG BRECKENRIDGE PHARMACEUTICALS [Suspect]
     Active Substance: DULOXETINE HYDROCHLORIDE
     Indication: FIBROMYALGIA
     Route: 048
     Dates: start: 20151104, end: 20151106

REACTIONS (15)
  - Vision blurred [None]
  - Chills [None]
  - Head discomfort [None]
  - Muscle twitching [None]
  - Mydriasis [None]
  - Urine output decreased [None]
  - Lethargy [None]
  - Dizziness [None]
  - Dyskinesia [None]
  - Tinnitus [None]
  - Somnolence [None]
  - Tremor [None]
  - Blood pressure increased [None]
  - Balance disorder [None]
  - Blepharospasm [None]

NARRATIVE: CASE EVENT DATE: 20151104
